FAERS Safety Report 21740179 (Version 2)
Quarter: 2023Q1

REPORT INFORMATION
  Report Type: Spontaneous
  Country: JP (occurrence: JP)
  Receive Date: 20221216
  Receipt Date: 20230127
  Transmission Date: 20230417
  Serious: No
  Sender: FDA-Public Use
  Company Number: JP-PFIZER INC-PV202200122605

PATIENT
  Age: 90 Year
  Sex: Female

DRUGS (1)
  1. PAXLOVID [Suspect]
     Active Substance: NIRMATRELVIR\RITONAVIR
     Indication: COVID-19 treatment
     Dosage: 1 DF, ONLY TOOK ONE TABLET NIRMATRELVIR
     Route: 048
     Dates: start: 20221129, end: 20221204

REACTIONS (1)
  - Incorrect dose administered [Unknown]
